FAERS Safety Report 13949236 (Version 2)
Quarter: 2017Q3

REPORT INFORMATION
  Report Type: Spontaneous
  Country: ZA (occurrence: ZA)
  Receive Date: 20170908
  Receipt Date: 20170912
  Transmission Date: 20171128
  Serious: Yes (Death)
  Sender: FDA-Public Use
  Company Number: ZA-PFIZER INC-2017385599

PATIENT
  Age: 49 Year
  Sex: Female

DRUGS (7)
  1. LAMICTIN [Concomitant]
     Active Substance: LAMOTRIGINE
     Indication: DEPRESSION
     Dosage: 200 MG, UNK
  2. WELLBUTRIN [Suspect]
     Active Substance: BUPROPION HYDROCHLORIDE
     Dosage: UNK
     Dates: start: 201707, end: 201707
  3. VALDOXANE [Suspect]
     Active Substance: AGOMELATINE
     Dosage: UNK
     Dates: start: 201707, end: 201707
  4. EXSIRA [Suspect]
     Active Substance: DESVENLAFAXINE SUCCINATE
     Indication: DEPRESSION
     Dosage: 50 MG, UNK
  5. EXSIRA [Suspect]
     Active Substance: DESVENLAFAXINE SUCCINATE
     Dosage: 100 MG, UNK
  6. WELLBUTRIN [Suspect]
     Active Substance: BUPROPION HYDROCHLORIDE
     Indication: DEPRESSION
     Dosage: 150 MG, UNK
  7. VALDOXANE [Suspect]
     Active Substance: AGOMELATINE
     Indication: DEPRESSION
     Dosage: UNK
     Dates: end: 201707

REACTIONS (8)
  - Anxiety [Unknown]
  - Weight decreased [Unknown]
  - Irritability [Unknown]
  - Completed suicide [Fatal]
  - Headache [Unknown]
  - Thinking abnormal [Unknown]
  - Nausea [Unknown]
  - Drug ineffective [Unknown]

NARRATIVE: CASE EVENT DATE: 20170731
